FAERS Safety Report 7964514-X (Version None)
Quarter: 2011Q4

REPORT INFORMATION
  Report Type: 
  Country: None (occurrence: None)
  Receive Date: 20111208
  Receipt Date: 20111129
  Transmission Date: 20120403
  Serious: Yes (Hospitalization, Disabling)
  Sender: FDA-Public Use
  Company Number: US-US-EMD SERONO, INC.-7099039

PATIENT
  Sex: Male

DRUGS (2)
  1. STEROIDS [Suspect]
  2. REBIF [Suspect]
     Indication: MULTIPLE SCLEROSIS
     Route: 058
     Dates: start: 20100517, end: 20111128

REACTIONS (2)
  - OSTEONECROSIS [None]
  - MULTIPLE SCLEROSIS RELAPSE [None]
